FAERS Safety Report 9214796 (Version 3)
Quarter: 2013Q3

REPORT INFORMATION
  Report Type: Report from Study
  Country: DE (occurrence: DE)
  Receive Date: 20130405
  Receipt Date: 20130731
  Transmission Date: 20140515
  Serious: Yes (Hospitalization)
  Sender: FDA-Public Use
  Company Number: DE-ROCHE-1206781

PATIENT
  Age: 56 Year
  Sex: Female
  Weight: 77.5 kg

DRUGS (5)
  1. TRASTUZUMAB [Suspect]
     Indication: BREAST CANCER
     Dosage: LOADING DOSE
     Route: 042
     Dates: start: 20120920
  2. TRASTUZUMAB [Suspect]
     Dosage: MAINTAINANCE DOSE, DATE OF LAST DOSE PRIOR TO SAE:11/MAR/2013
     Route: 042
  3. RAMIPRIL [Concomitant]
     Route: 065
     Dates: start: 201101
  4. EUTHYROX 100 [Concomitant]
     Route: 065
     Dates: start: 2002
  5. PERTUZUMAB [Suspect]
     Indication: BREAST CANCER
     Dosage: DATE OF LAST DOSE PRIOR TO SAE:11/MAR/2013
     Route: 042
     Dates: start: 20120920

REACTIONS (1)
  - Mastitis [Recovered/Resolved]
